FAERS Safety Report 11369032 (Version 3)
Quarter: 2015Q4

REPORT INFORMATION
  Report Type: Spontaneous
  Country: US (occurrence: US)
  Receive Date: 20150812
  Receipt Date: 20151125
  Transmission Date: 20160304
  Serious: Yes (Other)
  Sender: FDA-Public Use
  Company Number: PHEH2015US015256

PATIENT
  Age: 47 Year
  Sex: Female

DRUGS (1)
  1. GILENYA [Suspect]
     Active Substance: FINGOLIMOD HYDROCHLORIDE
     Indication: RELAPSING-REMITTING MULTIPLE SCLEROSIS
     Dosage: 0.5 MG, QD
     Route: 048

REACTIONS (5)
  - Squamous cell carcinoma of skin [Unknown]
  - Solar lentigo [Unknown]
  - Actinic keratosis [Unknown]
  - Impaired healing [Unknown]
  - Melanocytic naevus [Unknown]

NARRATIVE: CASE EVENT DATE: 20150807
